FAERS Safety Report 14641050 (Version 1)
Quarter: 2018Q1

REPORT INFORMATION
  Report Type: Spontaneous
  Country: US (occurrence: US)
  Receive Date: 20180314
  Receipt Date: 20180314
  Transmission Date: 20180509
  Serious: No
  Sender: FDA-Public Use
  Company Number: None

PATIENT
  Age: 67 Year
  Sex: Male
  Weight: 76.5 kg

DRUGS (4)
  1. ZOLPIDEM [Suspect]
     Active Substance: ZOLPIDEM\ZOLPIDEM TARTRATE
     Indication: INSOMNIA
     Dosage: ?          QUANTITY:1 TABLET(S);?
     Route: 048
     Dates: start: 20140215
  2. TRAMADOL. [Concomitant]
     Active Substance: TRAMADOL
  3. OMEPRAZOLE. [Concomitant]
     Active Substance: OMEPRAZOLE
  4. TYLANOL [Concomitant]

REACTIONS (5)
  - Insomnia [None]
  - Drug effect decreased [None]
  - Headache [None]
  - Product substitution issue [None]
  - Abdominal discomfort [None]

NARRATIVE: CASE EVENT DATE: 20140215
